FAERS Safety Report 5033063-3 (Version None)
Quarter: 2006Q2

REPORT INFORMATION
  Report Type: 
  Country: None (occurrence: None)
  Receive Date: 20060504
  Receipt Date: 20050517
  Transmission Date: 20061013
  Serious: Yes (Other)
  Sender: FDA-Public Use
  Company Number: PHEH2005US02501

PATIENT
  Age: 34 Year
  Sex: Female

DRUGS (5)
  1. TEGRETOL [Suspect]
     Indication: AFFECTIVE DISORDER
     Dosage: ORAL
     Route: 048
  2. LITHIUM (LITHIUM) [Concomitant]
  3. AMITRIPTYLINE HCL [Concomitant]
  4. LEVOTHYROXINE SODIUM [Concomitant]
  5. METOPROLOL (METOPROLOL) [Concomitant]

REACTIONS (4)
  - LYMPHADENOPATHY [None]
  - LYMPHOMA [None]
  - RASH [None]
  - RASH PRURITIC [None]
